FAERS Safety Report 13461884 (Version 1)
Quarter: 2017Q2

REPORT INFORMATION
  Report Type: Spontaneous
  Country: US (occurrence: US)
  Receive Date: 20170419
  Receipt Date: 20170419
  Transmission Date: 20170830
  Serious: Yes (Hospitalization)
  Sender: FDA-Public Use
  Company Number: None

PATIENT
  Age: 76 Year
  Sex: Male

DRUGS (1)
  1. ATENOLOL. [Suspect]
     Active Substance: ATENOLOL
     Indication: HYPERTENSION
     Route: 048
     Dates: start: 20151204, end: 20170407

REACTIONS (5)
  - Atrioventricular block complete [None]
  - Acute kidney injury [None]
  - Hyperkalaemia [None]
  - Hypoglycaemia [None]
  - Toxicity to various agents [None]

NARRATIVE: CASE EVENT DATE: 20170405
